FAERS Safety Report 6314345-1 (Version None)
Quarter: 2009Q3

REPORT INFORMATION
  Report Type: 
  Country: None (occurrence: None)
  Receive Date: 20090819
  Receipt Date: 20090807
  Transmission Date: 20100115
  Serious: Yes (Hospitalization)
  Sender: FDA-Public Use
  Company Number: TR-RANBAXY-2009RR-26155

PATIENT
  Age: 16 Year
  Sex: Male
  Weight: 68 kg

DRUGS (2)
  1. ACETAMINOPHEN [Suspect]
     Indication: UPPER RESPIRATORY TRACT INFECTION
     Dosage: 1500 MG, QD
     Route: 048
  2. MEFENAMIC ACID [Suspect]
     Indication: UPPER RESPIRATORY TRACT INFECTION
     Dosage: 500 MG, QD
     Route: 048

REACTIONS (2)
  - POLYURIA [None]
  - RENAL FAILURE ACUTE [None]
